FAERS Safety Report 20590402 (Version 5)
Quarter: 2022Q2

REPORT INFORMATION
  Report Type: Spontaneous
  Country: US (occurrence: US)
  Receive Date: 20220314
  Receipt Date: 20220531
  Transmission Date: 20220721
  Serious: No
  Sender: FDA-Public Use
  Company Number: US-ORGANON-O2203USA001238

PATIENT
  Sex: Female
  Weight: 85.261 kg

DRUGS (1)
  1. NEXPLANON [Suspect]
     Active Substance: ETONOGESTREL
     Indication: Contraception
     Dosage: 1 ROD OF 68 MG IN LEFT  UPPER ARM
     Route: 059
     Dates: start: 2019

REACTIONS (3)
  - Complication associated with device [Recovered/Resolved]
  - Product dose omission issue [Unknown]
  - No adverse event [Unknown]

NARRATIVE: CASE EVENT DATE: 20220101
